FAERS Safety Report 6458704-5 (Version None)
Quarter: 2009Q4

REPORT INFORMATION
  Report Type: 
  Country: None (occurrence: None)
  Receive Date: 20091127
  Receipt Date: 20091117
  Transmission Date: 20100525
  Serious: Yes (Hospitalization)
  Sender: FDA-Public Use
  Company Number: GB-ROCHE-664952

PATIENT
  Sex: Female
  Weight: 108.1 kg

DRUGS (10)
  1. MYCOPHENOLATE MOFETIL [Suspect]
     Indication: ANTI-NEUTROPHIL CYTOPLASMIC ANTIBODY POSITIVE VASCULITIS
     Dosage: FREQUENCY: 1GRAM MANE, 1 GRAM NOCTE.
     Route: 065
     Dates: start: 20090921
  2. MYCOPHENOLATE MOFETIL [Suspect]
     Dosage: ACTION TAKEN:DOSE REDUCTION.
     Route: 065
  3. LEVOTHYROXINE [Concomitant]
  4. PREDNISOLONE [Concomitant]
  5. METFORMIN HCL [Concomitant]
  6. GLUCAZIDE [Concomitant]
     Dosage: DOSE:80MG MANE 40MG NOCTE
  7. OMEPRAZOLE [Concomitant]
  8. CO-TRIMOXAZOLE SS [Concomitant]
     Dosage: DRUG NAME: CO-TRIMOXAZOLE. FREQUENCY: MONDAY, WEDNESDAY AND FRIDAY
  9. ALENDRONIC ACID [Concomitant]
  10. CALCICHEW [Concomitant]
     Dosage: FREQUENY: DAILY

REACTIONS (1)
  - PULMONARY EMBOLISM [None]
